FAERS Safety Report 5647064-5 (Version None)
Quarter: 2008Q1

REPORT INFORMATION
  Report Type: 
  Country: None (occurrence: None)
  Receive Date: 20080228
  Receipt Date: 20080228
  Transmission Date: 20080703
  Serious: Yes (Other)
  Sender: FDA-Public Use
  Company Number: None

PATIENT
  Age: 70 Year
  Sex: Male
  Weight: 90.7194 kg

DRUGS (2)
  1. PRAVACHOL [Suspect]
     Indication: CORONARY ARTERY DISEASE
     Dosage: 1 TABLET DAILY PO
     Route: 048
     Dates: start: 20070613, end: 20070713
  2. LIPITOR [Suspect]
     Indication: CORONARY ARTERY DISEASE
     Dosage: 1 TABLET DAILY PO
     Route: 048
     Dates: start: 20070913, end: 20070928

REACTIONS (3)
  - AGITATION [None]
  - INAPPROPRIATE AFFECT [None]
  - LOGORRHOEA [None]
